FAERS Safety Report 25139135 (Version 2)
Quarter: 2025Q2

REPORT INFORMATION
  Report Type: Spontaneous
  Country: BE (occurrence: BE)
  Receive Date: 20250331
  Receipt Date: 20250411
  Transmission Date: 20250717
  Serious: Yes (Death)
  Sender: TEVA
  Company Number: BE-TEVA-VS-3315124

PATIENT
  Age: 37 Year
  Sex: Male

DRUGS (6)
  1. VINBLASTINE [Suspect]
     Active Substance: VINBLASTINE
     Indication: Sertoli cell testicular tumour
     Route: 065
     Dates: start: 202212
  2. PAZOPANIB [Suspect]
     Active Substance: PAZOPANIB
     Indication: Sertoli cell testicular tumour
     Route: 065
  3. AXITINIB [Suspect]
     Active Substance: AXITINIB
     Indication: Sertoli cell testicular tumour
     Route: 065
  4. CISPLATIN [Suspect]
     Active Substance: CISPLATIN
     Indication: Sertoli cell testicular tumour
     Route: 065
     Dates: start: 202212
  5. PACLITAXEL [Suspect]
     Active Substance: PACLITAXEL
     Indication: Sertoli cell testicular tumour
     Route: 065
  6. IFOSFAMIDE [Suspect]
     Active Substance: IFOSFAMIDE
     Indication: Sertoli cell testicular tumour
     Route: 065
     Dates: start: 202212

REACTIONS (1)
  - Drug ineffective [Fatal]
